FAERS Safety Report 15734581 (Version 2)
Quarter: 2018Q4

REPORT INFORMATION
  Report Type: Spontaneous
  Country: JP (occurrence: JP)
  Receive Date: 20181218
  Receipt Date: 20181224
  Transmission Date: 20190205
  Serious: Yes (Other)
  Sender: FDA-Public Use
  Company Number: JP-GLAXOSMITHKLINE-JP2018JPN219331

PATIENT
  Age: 35 Year
  Sex: Male

DRUGS (4)
  1. ARASENA-A [Concomitant]
     Active Substance: VIDARABINE
     Indication: GENITAL HERPES
     Dosage: UNK UNK, QD
     Route: 050
     Dates: start: 20181130, end: 20181209
  2. ZITHROMAC [Concomitant]
     Active Substance: AZITHROMYCIN DIHYDRATE
     Indication: GENITAL HERPES
     Dosage: UNK
     Dates: start: 20181205, end: 20181209
  3. VALTREX [Suspect]
     Active Substance: VALACYCLOVIR HYDROCHLORIDE
     Indication: GENITAL HERPES
     Dosage: 500 MG, BID
     Route: 048
     Dates: start: 20181130, end: 20181209
  4. CRAVIT TABLETS [Concomitant]
     Indication: GENITAL HERPES
     Dosage: 500 MG, QD
     Route: 048
     Dates: start: 20181130, end: 20181204

REACTIONS (4)
  - Genital herpes [Recovering/Resolving]
  - Condition aggravated [Recovering/Resolving]
  - Syphilis [Unknown]
  - Drug effect incomplete [Unknown]

NARRATIVE: CASE EVENT DATE: 201812
